FAERS Safety Report 24943901 (Version 5)
Quarter: 2025Q3

REPORT INFORMATION
  Report Type: Spontaneous
  Country: US (occurrence: US)
  Receive Date: 20250207
  Receipt Date: 20250731
  Transmission Date: 20251021
  Serious: No
  Sender: PFIZER
  Company Number: US-PFIZER INC-202500027550

PATIENT
  Age: 61 Year
  Sex: Female

DRUGS (13)
  1. IBRANCE [Suspect]
     Active Substance: PALBOCICLIB
     Route: 048
     Dates: start: 20241231
  2. IBRANCE [Suspect]
     Active Substance: PALBOCICLIB
     Route: 048
  3. GABAPENTIN [Concomitant]
     Active Substance: GABAPENTIN
  4. MOUNJARO [Concomitant]
     Active Substance: TIRZEPATIDE
  5. ACETAMINOPHEN\OXYCODONE HYDROCHLORIDE [Concomitant]
     Active Substance: ACETAMINOPHEN\OXYCODONE HYDROCHLORIDE
  6. HYDROCODONE BITARTRATE AND ACETAMINOPHEN [Concomitant]
     Active Substance: ACETAMINOPHEN\HYDROCODONE BITARTRATE
  7. MAGNESIUM OXIDE [Concomitant]
     Active Substance: MAGNESIUM OXIDE
  8. ATORVASTATIN [Concomitant]
     Active Substance: ATORVASTATIN
  9. DULOXETINE [Concomitant]
     Active Substance: DULOXETINE
  10. RECLAST [Concomitant]
     Active Substance: ZOLEDRONIC ACID
  11. ANASTROZOLE [Concomitant]
     Active Substance: ANASTROZOLE
  12. PROLIA [Concomitant]
     Active Substance: DENOSUMAB
  13. LETROZOLE [Concomitant]
     Active Substance: LETROZOLE

REACTIONS (8)
  - Angiopathy [Unknown]
  - Pain in extremity [Unknown]
  - Fatigue [Unknown]
  - Asthenia [Unknown]
  - Dysgeusia [Not Recovered/Not Resolved]
  - Ageusia [Unknown]
  - Hot flush [Unknown]
  - Product dose omission issue [Unknown]
